FAERS Safety Report 6878092-X (Version None)
Quarter: 2010Q2

REPORT INFORMATION
  Report Type: 
  Country: None (occurrence: None)
  Receive Date: 20100616
  Receipt Date: 20100226
  Transmission Date: 20101027
  Serious: No
  Sender: FDA-Public Use
  Company Number: DSA_42707_2010

PATIENT
  Sex: Male

DRUGS (6)
  1. XENAZINE [Suspect]
     Indication: TOOTH DISORDER
     Dosage: (25 MG TID ORAL), (25 MG TID ORAL)
     Route: 048
     Dates: end: 20100119
  2. XENAZINE [Suspect]
     Indication: TOOTH DISORDER
     Dosage: (25 MG TID ORAL), (25 MG TID ORAL)
     Route: 048
     Dates: start: 20100120
  3. ATENOLOL [Concomitant]
  4. FLOMAX [Concomitant]
  5. MECLIZINE /00072801/ [Concomitant]
  6. ZOCOR [Concomitant]

REACTIONS (1)
  - HYPERSOMNIA [None]
